FAERS Safety Report 4285919-7 (Version None)
Quarter: 2004Q1

REPORT INFORMATION
  Report Type: 
  Country: None (occurrence: None)
  Receive Date: 20040203
  Receipt Date: 20030908
  Transmission Date: 20041129
  Serious: Yes (Death)
  Sender: FDA-Public Use
  Company Number: 2003-BP-06483BR (0)

PATIENT
  Age: 10 Year
  Sex: Male

DRUGS (1)
  1. CLONIDINE [Suspect]
     Indication: GROWTH RETARDATION
     Dosage: NR (70 MCG, NR)
     Route: 048

REACTIONS (1)
  - MALAISE [None]
